FAERS Safety Report 9152602 (Version 1)
Quarter: 2013Q1

REPORT INFORMATION
  Report Type: Spontaneous
  Country: US (occurrence: US)
  Receive Date: 20130308
  Receipt Date: 20130308
  Transmission Date: 20140127
  Serious: No
  Sender: FDA-Public Use
  Company Number: US-TEVA-389921USA

PATIENT
  Age: 20 Year
  Sex: Female
  Weight: 56.3 kg

DRUGS (4)
  1. PLAN B ONE-STEP [Suspect]
     Indication: POST COITAL CONTRACEPTION
     Dosage: 1.5 MILLIGRAM DAILY;
     Route: 048
     Dates: start: 20130202, end: 20130202
  2. PREVIFEM [Concomitant]
     Indication: CONTRACEPTION
  3. CIPROFLOXACIN [Concomitant]
     Indication: URINARY TRACT INFECTION
  4. PHENAZOPYRIDINE [Concomitant]
     Indication: URINARY TRACT PAIN

REACTIONS (6)
  - Vulvovaginal erythema [Not Recovered/Not Resolved]
  - Vulvovaginal swelling [Not Recovered/Not Resolved]
  - Fungal infection [Not Recovered/Not Resolved]
  - Coital bleeding [Not Recovered/Not Resolved]
  - Vulvovaginal pain [Not Recovered/Not Resolved]
  - Pelvic pain [Not Recovered/Not Resolved]
